FAERS Safety Report 8460557-0 (Version None)
Quarter: 2012Q2

REPORT INFORMATION
  Report Type: 
  Country: None (occurrence: None)
  Receive Date: 20120622
  Receipt Date: 20120327
  Transmission Date: 20120825
  Serious: No
  Sender: FDA-Public Use
  Company Number: US-ASTRAZENECA-2012SE20343

PATIENT
  Age: 71 Year
  Sex: Female
  Weight: 70.8 kg

DRUGS (7)
  1. SYNTHROID [Concomitant]
  2. BISOPROL [Concomitant]
  3. CLARITIN [Concomitant]
     Dosage: QD
  4. AMLODIPINE [Concomitant]
  5. PRILOSEC OTC [Suspect]
     Route: 048
  6. BRILINTA [Suspect]
     Indication: ANTICOAGULANT THERAPY
     Route: 048
     Dates: start: 20120106, end: 20120108
  7. LIPITOR [Concomitant]

REACTIONS (2)
  - URTICARIA [None]
  - HYPERSENSITIVITY [None]
